FAERS Safety Report 9146471 (Version 1)
Quarter: 2013Q1

REPORT INFORMATION
  Report Type: Spontaneous
  Country: US (occurrence: US)
  Receive Date: 20130307
  Receipt Date: 20130307
  Transmission Date: 20140127
  Serious: No
  Sender: FDA-Public Use
  Company Number: US-GLAXOSMITHKLINE-A0963573A

PATIENT
  Sex: Female

DRUGS (1)
  1. REQUIP [Suspect]
     Indication: PRODUCT USED FOR UNKNOWN INDICATION
     Route: 065
     Dates: start: 20090210

REACTIONS (3)
  - Condition aggravated [Unknown]
  - Product quality issue [Unknown]
  - Underdose [Unknown]
